FAERS Safety Report 10179575 (Version 1)
Quarter: 2014Q2

REPORT INFORMATION
  Report Type: Spontaneous
  Country: BR (occurrence: BR)
  Receive Date: 20140519
  Receipt Date: 20140519
  Transmission Date: 20141212
  Serious: Yes (Life-Threatening)
  Sender: FDA-Public Use
  Company Number: BR-PFIZER INC-2014131934

PATIENT
  Age: 55 Year
  Sex: Male

DRUGS (1)
  1. SUNITINIB MALATE [Suspect]
     Indication: METASTATIC RENAL CELL CARCINOMA
     Dosage: 50 MG, CYCLIC PER DAY FOR 4 WEEKS ON FOLLOWED BY 2 WEEKS OFF

REACTIONS (1)
  - Cholecystitis acute [Recovering/Resolving]
